FAERS Safety Report 8317745-3 (Version None)
Quarter: 2012Q2

REPORT INFORMATION
  Report Type: 
  Country: None (occurrence: None)
  Receive Date: 20120427
  Receipt Date: 20090710
  Transmission Date: 20120825
  Serious: No
  Sender: FDA-Public Use
  Company Number: US-TEVA-2009008400

PATIENT
  Sex: Male

DRUGS (2)
  1. BENICAR HCT [Concomitant]
     Dates: start: 20090401
  2. NUVIGIL [Suspect]
     Indication: MULTIPLE SCLEROSIS
     Dosage: 150 MILLIGRAM;
     Route: 048
     Dates: start: 20090609, end: 20090611

REACTIONS (2)
  - NAUSEA [None]
  - HYPERHIDROSIS [None]
